FAERS Safety Report 12527267 (Version 5)
Quarter: 2018Q4

REPORT INFORMATION
  Report Type: Report from Study
  Country: JP (occurrence: JP)
  Receive Date: 20160705
  Receipt Date: 20181005
  Transmission Date: 20190204
  Serious: Yes (Hospitalization, Disabling, Other)
  Sender: FDA-Public Use
  Company Number: JP-VIIV HEALTHCARE LIMITED-JP2016JPN092059

PATIENT
  Age: 5 Decade
  Sex: Male

DRUGS (17)
  1. BAKTAR [Concomitant]
     Active Substance: SULFAMETHOXAZOLE\TRIMETHOPRIM
     Indication: ANTIFUNGAL PROPHYLAXIS
     Dosage: 1 DF, QD
     Dates: start: 20150420, end: 20161013
  2. ISCOTIN (JAPAN) [Concomitant]
     Indication: DISSEMINATED TUBERCULOSIS
     Dosage: 300 MG, QD
     Dates: start: 20150302, end: 20151201
  3. DOLUTEGRAVIR [Suspect]
     Active Substance: DOLUTEGRAVIR
     Indication: HIV INFECTION
     Dosage: 100 MG, 1D
     Route: 048
     Dates: start: 20150428, end: 20151201
  4. TRUVADA [Suspect]
     Active Substance: EMTRICITABINE\TENOFOVIR DISOPROXIL FUMARATE
     Indication: HIV INFECTION
     Dosage: 1 DF, 1D
     Route: 048
     Dates: start: 20150428, end: 20170910
  5. ISCOTIN (JAPAN) [Concomitant]
     Indication: TUBERCULOMA OF CENTRAL NERVOUS SYSTEM
  6. PYDOXAL [Concomitant]
     Active Substance: PYRIDOXAL
     Indication: VITAMIN SUPPLEMENTATION
     Dosage: 30 MG, QD
     Dates: start: 20150302, end: 20151201
  7. FEXOFENADINE HYDROCHLORIDE OD TABLET [Concomitant]
     Indication: RASH
     Dosage: 60 MG, BID
     Dates: start: 20150420
  8. RIFAMPICIN [Concomitant]
     Active Substance: RIFAMPIN
     Indication: TUBERCULOMA OF CENTRAL NERVOUS SYSTEM
  9. EBUTOL (JAPAN) [Concomitant]
     Indication: DISSEMINATED TUBERCULOSIS
     Dosage: 1000 MG, QD
     Dates: start: 20150302, end: 20151201
  10. PYRAMIDE [Concomitant]
     Active Substance: PYRAZINAMIDE
     Indication: DISSEMINATED TUBERCULOSIS
     Dosage: 1.5 G, QD
     Dates: start: 20150302, end: 20150428
  11. RIFAMPICIN [Concomitant]
     Active Substance: RIFAMPIN
     Indication: DISSEMINATED TUBERCULOSIS
     Dosage: 600 MG, QD
     Dates: start: 20150302
  12. DOLUTEGRAVIR [Suspect]
     Active Substance: DOLUTEGRAVIR
     Dosage: 50 MG, 1D
     Route: 048
     Dates: start: 20151202
  13. DESCOVY [Concomitant]
     Active Substance: EMTRICITABINE\TENOFOVIR ALAFENAMIDE FUMARATE
     Indication: HIV INFECTION
     Dosage: 1 DF, 1D
     Dates: start: 20170911
  14. PYRAMIDE [Concomitant]
     Active Substance: PYRAZINAMIDE
     Indication: TUBERCULOMA OF CENTRAL NERVOUS SYSTEM
  15. SILECE [Concomitant]
     Active Substance: FLUNITRAZEPAM
     Indication: INSOMNIA
     Dosage: 1 MG, QD
     Dates: start: 20150420, end: 20160628
  16. EBUTOL (JAPAN) [Concomitant]
     Indication: TUBERCULOMA OF CENTRAL NERVOUS SYSTEM
  17. FLUNITRAZEPAM [Concomitant]
     Active Substance: FLUNITRAZEPAM
     Dosage: UNK
     Dates: start: 20180222

REACTIONS (4)
  - Immune reconstitution inflammatory syndrome associated tuberculosis [Recovering/Resolving]
  - Blood triglycerides increased [Not Recovered/Not Resolved]
  - Tuberculoma of central nervous system [Recovering/Resolving]
  - Gamma-glutamyltransferase increased [Recovering/Resolving]

NARRATIVE: CASE EVENT DATE: 20150511
